FAERS Safety Report 5018625-1 (Version None)
Quarter: 2006Q2

REPORT INFORMATION
  Report Type: 
  Country: None (occurrence: None)
  Receive Date: 20060414
  Receipt Date: 20060103
  Transmission Date: 20061013
  Serious: No
  Sender: FDA-Public Use
  Company Number: 2006SP000024

PATIENT
  Age: 47 Year
  Sex: Female
  Weight: 73.4827 kg

DRUGS (10)
  1. LUNESTA [Suspect]
     Indication: RESTLESS LEGS SYNDROME
     Dosage: 3 MG;HS;ORAL
     Route: 048
     Dates: start: 20051207
  2. AMBIEN [Concomitant]
  3. SONATA [Concomitant]
  4. REQUIP [Concomitant]
  5. BUSPIRONE HCL [Concomitant]
  6. KLONAZEPAM [Concomitant]
  7. FERROUS SULFATE TAB [Concomitant]
  8. SYNTHROID [Concomitant]
  9. ATENOLOL [Concomitant]
  10. SINEMET [Concomitant]

REACTIONS (2)
  - DYSGEUSIA [None]
  - MIDDLE INSOMNIA [None]
